FAERS Safety Report 7774994-0 (Version None)
Quarter: 2011Q3

REPORT INFORMATION
  Report Type: 
  Country: None (occurrence: None)
  Receive Date: 20110923
  Receipt Date: 20110914
  Transmission Date: 20111222
  Serious: Yes (Hospitalization)
  Sender: FDA-Public Use
  Company Number: JP-EISAI INC-E7389-01346-SPO-JP

PATIENT
  Sex: Female
  Weight: 41 kg

DRUGS (13)
  1. HALAVEN [Suspect]
     Indication: BREAST CANCER
     Route: 041
     Dates: start: 20110722, end: 20110815
  2. HALAVEN [Suspect]
     Route: 041
     Dates: start: 20110905, end: 20110905
  3. PURSENID [Concomitant]
     Indication: CONSTIPATION
     Route: 048
     Dates: start: 20110801
  4. LANSOPRAZOLE [Concomitant]
     Indication: GASTROOESOPHAGEAL REFLUX DISEASE
     Route: 048
     Dates: start: 20110620
  5. LASIX [Concomitant]
     Indication: OEDEMA
     Route: 048
     Dates: start: 20110722
  6. NEW LECICARBON SUPPLEMENT [Concomitant]
     Indication: CONSTIPATION
     Route: 065
     Dates: start: 20110826
  7. MAGNESIUM OXIDE [Concomitant]
     Indication: CONSTIPATION
     Route: 048
     Dates: start: 20110709
  8. PROCHLORPERAZINE [Concomitant]
     Route: 048
     Dates: start: 20110801, end: 20110901
  9. MORPHINE SULFATE [Concomitant]
     Indication: CANCER PAIN
     Route: 048
     Dates: start: 20110730, end: 20110830
  10. DECADRON [Suspect]
     Route: 042
     Dates: start: 20110615, end: 20110905
  11. BETAMETHASONE [Concomitant]
     Indication: CACHEXIA
     Route: 048
     Dates: start: 20110610, end: 20110821
  12. NAPROXEN [Concomitant]
     Route: 048
     Dates: start: 20110708, end: 20110901
  13. NEW LECICARBON SUPPLEMENT [Concomitant]
     Route: 065
     Dates: start: 20110805, end: 20110815

REACTIONS (3)
  - LEUKOPENIA [None]
  - PNEUMOCYSTIS JIROVECI PNEUMONIA [None]
  - DYSGEUSIA [None]
